FAERS Safety Report 22644360 (Version 1)
Quarter: 2023Q2

REPORT INFORMATION
  Report Type: Other
  Country: PK (occurrence: None)
  Receive Date: 20230627
  Receipt Date: 20230627
  Transmission Date: 20230722
  Serious: Yes (Other)
  Sender: FDA-Public Use
  Company Number: PK-ROCHE-3375251

PATIENT
  Age: 77 Year
  Sex: Female

DRUGS (3)
  1. MABTHERA [Suspect]
     Active Substance: RITUXIMAB
     Indication: Diffuse large B-cell lymphoma
     Dosage: SOLUTION
     Route: 058
     Dates: start: 20230321, end: 20230511
  2. RITUXIMAB [Suspect]
     Active Substance: RITUXIMAB
     Indication: Diffuse large B-cell lymphoma recurrent
     Dosage: SOLUTION, FOR 6 CYCLES
     Route: 041
     Dates: start: 20230509
  3. POLIVY [Suspect]
     Active Substance: POLATUZUMAB VEDOTIN-PIIQ
     Indication: Diffuse large B-cell lymphoma recurrent
     Dosage: FOR 6 CYCLES
     Route: 042

REACTIONS (1)
  - Diffuse large B-cell lymphoma recurrent [Unknown]
